FAERS Safety Report 18386608 (Version 1)
Quarter: 2020Q4

REPORT INFORMATION
  Report Type: Spontaneous
  Country: US (occurrence: US)
  Receive Date: 20201015
  Receipt Date: 20201015
  Transmission Date: 20210114
  Serious: Yes (Death)
  Sender: FDA-Public Use
  Company Number: US-PFIZER INC-2020212072

PATIENT
  Age: 88 Year
  Sex: Male

DRUGS (2)
  1. INLYTA [Suspect]
     Active Substance: AXITINIB
     Indication: CHRONIC LYMPHOCYTIC LEUKAEMIA
  2. INLYTA [Suspect]
     Active Substance: AXITINIB
     Indication: RENAL NEOPLASM
     Dosage: 5 MG

REACTIONS (1)
  - Death [Fatal]
